FAERS Safety Report 17434894 (Version 1)
Quarter: 2020Q1

REPORT INFORMATION
  Report Type: Spontaneous
  Country: AR (occurrence: AR)
  Receive Date: 20200219
  Receipt Date: 20200219
  Transmission Date: 20200409
  Serious: Yes (Other)
  Sender: FDA-Public Use
  Company Number: NVSC2020AR029515

PATIENT
  Sex: Female

DRUGS (1)
  1. GALVUS MET [Suspect]
     Active Substance: METFORMIN HYDROCHLORIDE\VILDAGLIPTIN
     Indication: DIABETES MELLITUS
     Dosage: 2 DF (50/1000 OT), QD
     Route: 065
     Dates: end: 202002

REACTIONS (10)
  - Blood glucose decreased [Recovering/Resolving]
  - Malaise [Unknown]
  - Blood pressure increased [Recovering/Resolving]
  - Blood glucose abnormal [Recovering/Resolving]
  - Ill-defined disorder [Unknown]
  - Blood glucose increased [Recovering/Resolving]
  - Vertigo [Unknown]
  - Nausea [Unknown]
  - Dizziness [Unknown]
  - Mobility decreased [Unknown]
